FAERS Safety Report 9080310 (Version 1)
Quarter: 2013Q1

REPORT INFORMATION
  Report Type: Spontaneous
  Country: US (occurrence: US)
  Receive Date: 20130130
  Receipt Date: 20130130
  Transmission Date: 20140127
  Serious: No
  Sender: FDA-Public Use
  Company Number: US-ABBOTT-12P-163-0977536-00

PATIENT
  Sex: Female
  Weight: 61.29 kg

DRUGS (2)
  1. HUMIRA [Suspect]
     Indication: PSORIATIC ARTHROPATHY
     Dates: start: 2009, end: 2011
  2. HUMIRA [Suspect]
     Dates: start: 2011

REACTIONS (1)
  - Injection site pain [Not Recovered/Not Resolved]
